FAERS Safety Report 13610136 (Version 1)
Quarter: 2017Q2

REPORT INFORMATION
  Report Type: Spontaneous
  Country: GB (occurrence: GB)
  Receive Date: 20170604
  Receipt Date: 20170604
  Transmission Date: 20170830
  Serious: Yes (Other)
  Sender: FDA-Public Use
  Company Number: GB-TORRENT-00015319

PATIENT
  Age: 67 Year
  Sex: Male

DRUGS (2)
  1. VOLIBRIS [Suspect]
     Active Substance: AMBRISENTAN
  2. SILDENAFIL. [Suspect]
     Active Substance: SILDENAFIL

REACTIONS (4)
  - Cough [Unknown]
  - Dyspnoea [Unknown]
  - Dry mouth [Unknown]
  - Nasal dryness [Unknown]
